FAERS Safety Report 6522585-1 (Version None)
Quarter: 2009Q4

REPORT INFORMATION
  Report Type: 
  Country: None (occurrence: None)
  Receive Date: 20091230
  Receipt Date: 20091218
  Transmission Date: 20100525
  Serious: Yes (Other)
  Sender: FDA-Public Use
  Company Number: US-AMGEN-QUU378774

PATIENT
  Sex: Male
  Weight: 69 kg

DRUGS (2)
  1. ENBREL [Suspect]
     Indication: RHEUMATOID ARTHRITIS
     Route: 058
     Dates: start: 20090801, end: 20091201
  2. METHOTREXATE [Concomitant]
     Route: 048

REACTIONS (3)
  - BRONCHITIS [None]
  - OEDEMA MOUTH [None]
  - SWOLLEN TONGUE [None]
